FAERS Safety Report 5941777-3 (Version None)
Quarter: 2008Q4

REPORT INFORMATION
  Report Type: 
  Country: None (occurrence: None)
  Receive Date: 20081105
  Receipt Date: 20081023
  Transmission Date: 20090506
  Serious: Yes (Other)
  Sender: FDA-Public Use
  Company Number: PHHY2008US27052

PATIENT
  Age: 59 Year
  Sex: Female

DRUGS (1)
  1. SANDOSTATIN LAR [Suspect]
     Indication: CARCINOID SYNDROME
     Dosage: MONTHLY

REACTIONS (6)
  - CARDIAC DISORDER [None]
  - CHOLELITHIASIS [None]
  - KERATOCONJUNCTIVITIS SICCA [None]
  - METABOLIC SYNDROME [None]
  - OSTEOPENIA [None]
  - VITAMIN D DECREASED [None]
